FAERS Safety Report 25788043 (Version 1)
Quarter: 2025Q3

REPORT INFORMATION
  Report Type: Spontaneous
  Country: EU (occurrence: EU)
  Receive Date: 20250910
  Receipt Date: 20250910
  Transmission Date: 20251020
  Serious: Yes (Life-Threatening, Hospitalization)
  Sender: SANDOZ
  Company Number: EU-002147023-PHHY2014IT084619

PATIENT
  Age: 3 Year
  Sex: Female

DRUGS (1)
  1. RIVASTIGMINE [Suspect]
     Active Substance: RIVASTIGMINE
     Indication: Accidental exposure to product by child
     Route: 048

REACTIONS (18)
  - Toxicity to various agents [Recovered/Resolved]
  - Accidental exposure to product by child [Recovered/Resolved]
  - Cholinergic syndrome [Recovered/Resolved]
  - Mental disorder [Unknown]
  - Confusional state [Recovered/Resolved]
  - Somnolence [Recovered/Resolved]
  - Salivary hypersecretion [Recovered/Resolved]
  - Hyperhidrosis [Recovered/Resolved]
  - Diarrhoea [Recovered/Resolved]
  - Respiratory failure [Recovered/Resolved]
  - Tachypnoea [Recovered/Resolved]
  - Abdominal distension [Recovered/Resolved]
  - Sinus tachycardia [Recovered/Resolved]
  - Mental impairment [Recovered/Resolved]
  - Psychomotor hyperactivity [Recovered/Resolved]
  - Miosis [Recovered/Resolved]
  - Oxygen saturation decreased [Unknown]
  - Hyporesponsive to stimuli [Recovered/Resolved]
